FAERS Safety Report 6865802-0 (Version None)
Quarter: 2010Q3

REPORT INFORMATION
  Report Type: 
  Country: None (occurrence: None)
  Receive Date: 20100720
  Receipt Date: 20100707
  Transmission Date: 20110219
  Serious: Yes (Hospitalization)
  Sender: FDA-Public Use
  Company Number: A-CH2010-37354

PATIENT
  Sex: Female

DRUGS (1)
  1. TRACLEER [Suspect]
     Indication: SKIN ULCER
     Dosage: 62.5 MG, BID, ORAL
     Route: 048

REACTIONS (6)
  - BLOOD LACTATE DEHYDROGENASE INCREASED [None]
  - GENERAL PHYSICAL HEALTH DETERIORATION [None]
  - OEDEMA PERIPHERAL [None]
  - RHABDOMYOLYSIS [None]
  - URINARY TRACT INFECTION PSEUDOMONAL [None]
  - WHITE BLOOD CELL COUNT INCREASED [None]
